FAERS Safety Report 19823260 (Version 4)
Quarter: 2021Q4

REPORT INFORMATION
  Report Type: Report from Study
  Country: US (occurrence: US)
  Receive Date: 20210913
  Receipt Date: 20211115
  Transmission Date: 20220304
  Serious: Yes (Hospitalization, Other)
  Sender: FDA-Public Use
  Company Number: US-GILEAD-2021-0548125

PATIENT
  Sex: Female

DRUGS (4)
  1. AMBRISENTAN [Suspect]
     Active Substance: AMBRISENTAN
     Indication: Pulmonary arterial hypertension
     Dosage: 10 MG, QD
     Route: 065
     Dates: start: 20210602
  2. XARELTO [Concomitant]
     Active Substance: RIVAROXABAN
  3. SILDENAFIL [Concomitant]
     Active Substance: SILDENAFIL
  4. REMODULIN [Concomitant]
     Active Substance: TREPROSTINIL

REACTIONS (5)
  - Pyrexia [Unknown]
  - Pain [Unknown]
  - Device related infection [Unknown]
  - Infusion site pain [Unknown]
  - Illness [Unknown]
